FAERS Safety Report 7681156-4 (Version None)
Quarter: 2011Q3

REPORT INFORMATION
  Report Type: 
  Country: None (occurrence: None)
  Receive Date: 20110812
  Receipt Date: 20110803
  Transmission Date: 20111222
  Serious: Yes (Hospitalization)
  Sender: FDA-Public Use
  Company Number: SE-ABBOTT-11P-150-0843977-03

PATIENT
  Sex: Male
  Weight: 52 kg

DRUGS (3)
  1. HUMIRA [Suspect]
     Indication: CROHN'S DISEASE
     Route: 058
     Dates: start: 20080423, end: 20081010
  2. HUMIRA [Suspect]
     Route: 058
     Dates: start: 20090911
  3. REMICADE [Concomitant]
     Indication: CROHN'S DISEASE
     Dosage: INDUCTION. 1 INFUS. ON 13 NOV 2008 (WK 2). 1 INFUS. 11 DEC (WK 6), THEN EVERY 8:E WK
     Dates: start: 20081113

REACTIONS (1)
  - MALNUTRITION [None]
